FAERS Safety Report 14148304 (Version 1)
Quarter: 2017Q4

REPORT INFORMATION
  Report Type: Spontaneous
  Country: US (occurrence: US)
  Receive Date: 20171101
  Receipt Date: 20171101
  Transmission Date: 20180321
  Serious: Yes (Other)
  Sender: FDA-Public Use
  Company Number: US-SHIRE-US201726962

PATIENT
  Sex: Male

DRUGS (4)
  1. GAMMAGARD LIQUID [Suspect]
     Active Substance: HUMAN IMMUNOGLOBULIN G
     Dosage: 70 G, EVERY 10 DAYS
     Route: 042
     Dates: start: 201702
  2. GAMMAGARD LIQUID [Suspect]
     Active Substance: HUMAN IMMUNOGLOBULIN G
     Indication: PRODUCT USED FOR UNKNOWN INDICATION
     Dosage: 70 G, EVERY DAYS
     Route: 042
     Dates: start: 2016
  3. GAMMAGARD LIQUID [Suspect]
     Active Substance: HUMAN IMMUNOGLOBULIN G
     Dosage: 60 G, EVERY 14 DAYS
     Route: 042
     Dates: start: 201607
  4. GAMMAGARD LIQUID [Suspect]
     Active Substance: HUMAN IMMUNOGLOBULIN G
     Dosage: UNK, SMALL DOSE
     Route: 042
     Dates: start: 201605

REACTIONS (4)
  - Guillain-Barre syndrome [Unknown]
  - General symptom [Unknown]
  - Chronic inflammatory demyelinating polyradiculoneuropathy [Unknown]
  - Herpes simplex test positive [Unknown]
